FAERS Safety Report 22861363 (Version 5)
Quarter: 2024Q3

REPORT INFORMATION
  Report Type: Spontaneous
  Country: US (occurrence: US)
  Receive Date: 20230824
  Receipt Date: 20240923
  Transmission Date: 20241017
  Serious: No
  Sender: PFIZER
  Company Number: US-PFIZER INC-PV202300143948

PATIENT
  Age: 82 Year
  Sex: Female
  Weight: 108.86 kg

DRUGS (4)
  1. MORPHINE SULFATE [Suspect]
     Active Substance: MORPHINE SULFATE
     Dosage: UNK
  2. XGEVA [Concomitant]
     Active Substance: DENOSUMAB
     Indication: Breast cancer female
     Dosage: UNK
     Dates: start: 20201003, end: 20211208
  3. ZOLEDRONIC ACID [Concomitant]
     Active Substance: ZOLEDRONIC ACID
     Dosage: UNK
  4. IBRANCE [Concomitant]
     Active Substance: PALBOCICLIB
     Indication: Metastases to breast
     Dosage: 125 MG, CYCLIC (TAKE ONE BY MOUTH DAILY FOR 21 DAYS THEN 7 DAYS OFF)
     Route: 048

REACTIONS (2)
  - Drug hypersensitivity [Unknown]
  - Vomiting [Not Recovered/Not Resolved]
